FAERS Safety Report 4827513-2 (Version None)
Quarter: 2005Q4

REPORT INFORMATION
  Report Type: 
  Country: None (occurrence: None)
  Receive Date: 20051114
  Receipt Date: 20030602
  Transmission Date: 20060501
  Serious: Yes (Death, Other)
  Sender: FDA-Public Use
  Company Number: FR-BRISTOL-MYERS SQUIBB COMPANY-12291811

PATIENT
  Age: 68 Year
  Sex: Female

DRUGS (8)
  1. GLUCOPHAGE [Suspect]
     Indication: DIABETES MELLITUS INSULIN-DEPENDENT
     Route: 048
  2. TANGANIL [Concomitant]
  3. UMULINE ZINC COMPOSE [Concomitant]
     Indication: DIABETES MELLITUS
  4. DIAFUSOR [Concomitant]
     Indication: ISCHAEMIC CARDIOMYOPATHY
  5. EFFEXOR [Concomitant]
     Indication: DEPRESSION
     Route: 048
  6. NOCTAMIDE [Concomitant]
  7. KARDEGIC [Concomitant]
  8. VASTEN [Concomitant]
     Indication: DYSLIPIDAEMIA

REACTIONS (5)
  - COMA [None]
  - DEPRESSION [None]
  - LACTIC ACIDOSIS [None]
  - RENAL IMPAIRMENT [None]
  - SHOCK [None]
